FAERS Safety Report 19749279 (Version 1)
Quarter: 2021Q3

REPORT INFORMATION
  Report Type: Spontaneous
  Country: US (occurrence: US)
  Receive Date: 20210825
  Receipt Date: 20210825
  Transmission Date: 20211014
  Serious: Yes (Hospitalization)
  Sender: FDA-Public Use
  Company Number: None

PATIENT
  Age: 65 Year
  Sex: Male

DRUGS (9)
  1. METOPROLOL TARTRATE. [Concomitant]
     Active Substance: METOPROLOL TARTRATE
  2. AMIODARONE [Concomitant]
     Active Substance: AMIODARONE
  3. ROUSUVASTATIN [Concomitant]
  4. OCTREOTIDE. [Suspect]
     Active Substance: OCTREOTIDE
     Indication: RENAL CANCER
     Dosage: ?          OTHER FREQUENCY:TID FOR 7 DAYS;?
     Route: 058
     Dates: start: 20210810
  5. ELIQUIS [Concomitant]
     Active Substance: APIXABAN
  6. OMEPRAZOLE. [Concomitant]
     Active Substance: OMEPRAZOLE
  7. SENNA [Concomitant]
     Active Substance: SENNA LEAF\SENNOSIDES\SENNOSIDES A AND B
  8. AMLOD/BENZAP [Concomitant]
  9. PANTOPRAZOLE [Concomitant]
     Active Substance: PANTOPRAZOLE

REACTIONS (1)
  - Dermatitis contact [None]

NARRATIVE: CASE EVENT DATE: 20210820
